FAERS Safety Report 5078440-X (Version None)
Quarter: 2006Q3

REPORT INFORMATION
  Report Type: 
  Country: None (occurrence: None)
  Receive Date: 20060811
  Receipt Date: 20060727
  Transmission Date: 20061208
  Serious: Yes (Hospitalization)
  Sender: FDA-Public Use
  Company Number: FR-BRISTOL-MYERS SQUIBB COMPANY-13472477

PATIENT
  Age: 25 Year
  Sex: Male

DRUGS (3)
  1. HOLOXAN [Suspect]
     Indication: NEOPLASM MALIGNANT
     Route: 042
     Dates: start: 20060411, end: 20060415
  2. CISPLATIN [Suspect]
     Indication: NEOPLASM MALIGNANT
     Route: 042
     Dates: start: 20060411, end: 20060415
  3. GEMZAR [Suspect]
     Indication: NEOPLASM MALIGNANT
     Route: 042
     Dates: start: 20060415, end: 20060415

REACTIONS (2)
  - ERYSIPELAS [None]
  - THROMBOSIS [None]
